FAERS Safety Report 19262728 (Version 1)
Quarter: 2021Q2

REPORT INFORMATION
  Report Type: Spontaneous
  Country: US (occurrence: US)
  Receive Date: 20210517
  Receipt Date: 20210517
  Transmission Date: 20210717
  Serious: Yes (Other)
  Sender: FDA-Public Use
  Company Number: US-CIPLA LTD.-2021US03508

PATIENT

DRUGS (4)
  1. GEMCITABINE. [Suspect]
     Active Substance: GEMCITABINE
     Indication: TRANSITIONAL CELL CARCINOMA
     Dosage: 1000 MILLIGRAM/SQ. METER, ON DAYS 1 + 8 OF EACH CYCLE, AS A 30? MIN IV INFUSION IN 500 ML SALINE
     Route: 041
     Dates: start: 201510
  2. SALINE [SODIUM CHLORIDE] [Concomitant]
     Active Substance: SODIUM CHLORIDE
     Indication: TRANSITIONAL CELL CARCINOMA
     Dosage: 500 MILLILITER, GEMCITABINE AS A 30? MIN IV INFUSION IN 500 ML SALINE ON DAYS 1 + 8 OF EACH CYCLE
     Route: 041
     Dates: start: 201510
  3. SALINE [SODIUM CHLORIDE] [Concomitant]
     Active Substance: SODIUM CHLORIDE
     Dosage: 1 LITER, 4?H IV INFUSION IN 1 L SALINE ON DAY 1
     Route: 041
     Dates: start: 201510
  4. CISPLATIN. [Suspect]
     Active Substance: CISPLATIN
     Indication: TRANSITIONAL CELL CARCINOMA
     Dosage: 70 MILLIGRAM/SQ. METER, ON DAY 1 AS A 4?H IV INFUSION IN 1 L SALINE
     Route: 041
     Dates: start: 201510

REACTIONS (5)
  - Anaemia [Unknown]
  - Depression [Unknown]
  - Diarrhoea [Unknown]
  - Nausea [Unknown]
  - Neutropenia [Unknown]

NARRATIVE: CASE EVENT DATE: 2015
